FAERS Safety Report 10511124 (Version 8)
Quarter: 2015Q3

REPORT INFORMATION
  Report Type: Report from Study
  Country: US (occurrence: US)
  Receive Date: 20141010
  Receipt Date: 20150915
  Transmission Date: 20151125
  Serious: Yes (Other)
  Sender: FDA-Public Use
  Company Number: US-SA-2014SA135887

PATIENT
  Age: 49 Year
  Sex: Male

DRUGS (2)
  1. AUBAGIO [Suspect]
     Active Substance: TERIFLUNOMIDE
     Indication: MULTIPLE SCLEROSIS
     Route: 048
     Dates: start: 20140917
  2. AUBAGIO [Suspect]
     Active Substance: TERIFLUNOMIDE
     Indication: MULTIPLE SCLEROSIS
     Route: 048

REACTIONS (14)
  - Fall [Unknown]
  - Head discomfort [Unknown]
  - Tooth infection [Recovering/Resolving]
  - Insomnia [Recovering/Resolving]
  - Tooth abscess [Recovering/Resolving]
  - Fatigue [Unknown]
  - Feeling abnormal [Recovering/Resolving]
  - Nasopharyngitis [Recovering/Resolving]
  - Fatigue [Recovering/Resolving]
  - Headache [Unknown]
  - Toothache [Recovering/Resolving]
  - Mental impairment [Unknown]
  - Back pain [Recovering/Resolving]
  - Hypoaesthesia [Unknown]

NARRATIVE: CASE EVENT DATE: 201409
